FAERS Safety Report 5025129-9 (Version None)
Quarter: 2006Q2

REPORT INFORMATION
  Report Type: 
  Country: None (occurrence: None)
  Receive Date: 20060609
  Receipt Date: 20060609
  Transmission Date: 20061013
  Serious: Yes (Life-Threatening, Hospitalization, Disabling)
  Sender: FDA-Public Use
  Company Number: None

PATIENT
  Age: 62 Year
  Sex: Male
  Weight: 115 kg

DRUGS (2)
  1. MIDAZOLAM HCL [Suspect]
     Indication: SEDATION
     Dosage: 2MG/HR CONTINUOUS INFUSION IV
     Route: 042
     Dates: start: 20060521, end: 20060523
  2. FENTANYL [Suspect]
     Indication: PAIN MANAGEMENT
     Dosage: 75MCG/HR CONTINUOUS INFUSION IV
     Route: 042
     Dates: start: 20060521, end: 20060523

REACTIONS (2)
  - DIFFICULT TO WEAN FROM VENTILATOR [None]
  - SEDATION [None]
